FAERS Safety Report 12669217 (Version 1)
Quarter: 2016Q3

REPORT INFORMATION
  Report Type: Spontaneous
  Country: FR (occurrence: FR)
  Receive Date: 20160819
  Receipt Date: 20160819
  Transmission Date: 20161109
  Serious: Yes (Other)
  Sender: FDA-Public Use
  Company Number: FR-AMGEN-FRASP2016104748

PATIENT
  Age: 60 Year
  Sex: Female
  Weight: 51 kg

DRUGS (9)
  1. CORTANCYL [Concomitant]
     Active Substance: PREDNISONE
     Dosage: 60 MG,D1,UNK
     Route: 065
  2. TAXOTERE [Concomitant]
     Active Substance: DOCETAXEL
     Dosage: 50 MG/M2, UNK
     Route: 065
     Dates: start: 20160814
  3. GEMZAR [Concomitant]
     Active Substance: GEMCITABINE HYDROCHLORIDE
     Dosage: 1000 MG/M2, UNK
     Route: 065
     Dates: start: 20160814
  4. ZOFRAN [Concomitant]
     Active Substance: ONDANSETRON HYDROCHLORIDE
     Route: 065
  5. CARBOPLATINE [Concomitant]
     Active Substance: CARBOPLATIN
     Dosage: 430 MG/CURE, 6 CURES IN TOTAL
     Route: 042
     Dates: start: 20151007, end: 20160311
  6. EMEND [Concomitant]
     Active Substance: APREPITANT
     Dosage: D1D3
     Route: 065
  7. LEVOTHYROX [Concomitant]
     Active Substance: LEVOTHYROXINE
     Indication: HYPOTHYROIDISM
     Route: 065
  8. CAELYX [Concomitant]
     Active Substance: DOXORUBICIN HYDROCHLORIDE
     Dosage: 46 MG (30 MG/M22), UNK
     Route: 042
     Dates: start: 20151007, end: 20160311
  9. XGEVA [Suspect]
     Active Substance: DENOSUMAB
     Indication: PRODUCT USED FOR UNKNOWN INDICATION
     Dosage: UNK UNK, Q4WK
     Route: 058
     Dates: start: 20150929, end: 201607

REACTIONS (3)
  - Tendonitis [Not Recovered/Not Resolved]
  - Tendon pain [Not Recovered/Not Resolved]
  - Tendon disorder [Not Recovered/Not Resolved]

NARRATIVE: CASE EVENT DATE: 201604
